FAERS Safety Report 4970771-4 (Version None)
Quarter: 2006Q2

REPORT INFORMATION
  Report Type: 
  Country: None (occurrence: None)
  Receive Date: 20060406
  Receipt Date: 20060327
  Transmission Date: 20061013
  Serious: Yes (Death)
  Sender: FDA-Public Use
  Company Number: 2006EU001051

PATIENT
  Age: 27 Year
  Sex: Female

DRUGS (3)
  1. PROGRAF [Suspect]
     Indication: LIVER TRANSPLANT
     Dates: start: 20000101
  2. MYCOPHENOLATE MOFETIL [Suspect]
     Indication: LIVER TRANSPLANT
     Dates: start: 20000101
  3. METHYLPREDNISOLONE [Suspect]
     Indication: LIVER TRANSPLANT
     Dates: start: 20000101

REACTIONS (7)
  - CYTOMEGALOVIRUS INFECTION [None]
  - FATIGUE [None]
  - HYPOXIA [None]
  - PANCYTOPENIA [None]
  - PERITONITIS [None]
  - STAPHYLOCOCCAL INFECTION [None]
  - TOXOPLASMOSIS [None]
